FAERS Safety Report 23761527 (Version 1)
Quarter: 2024Q2

REPORT INFORMATION
  Report Type: Spontaneous
  Country: FR (occurrence: FR)
  Receive Date: 20240419
  Receipt Date: 20240419
  Transmission Date: 20240715
  Serious: Yes (Death)
  Sender: FDA-Public Use
  Company Number: None

PATIENT
  Age: 56 Year
  Sex: Female
  Weight: 76 kg

DRUGS (4)
  1. HEPARIN SODIUM [Suspect]
     Active Substance: HEPARIN SODIUM
     Indication: Ischaemic stroke
     Dosage: IV DRIP?DAILY DOSE: 20000 IU (INTERNATIONAL UNIT)
     Route: 042
     Dates: start: 20230619, end: 20230620
  2. HEPARIN SODIUM [Suspect]
     Active Substance: HEPARIN SODIUM
     Indication: Ischaemic stroke
     Dosage: IV DRIP?DAILY DOSE: 9600 IU (INTERNATIONAL UNIT)
     Route: 042
     Dates: start: 20230622, end: 20230626
  3. CLONAZEPAM [Suspect]
     Active Substance: CLONAZEPAM
     Dosage: AMPOULE
     Dates: start: 20230621, end: 20230621
  4. KARDEGIC [Suspect]
     Active Substance: ASPIRIN DL-LYSINE
     Indication: Ischaemic stroke
     Dosage: SACHET?DAILY DOSE: 1 DOSAGE FORM
     Route: 048
     Dates: start: 20230617, end: 20230621

REACTIONS (2)
  - Haemorrhagic transformation stroke [Fatal]
  - Off label use [Recovered/Resolved]

NARRATIVE: CASE EVENT DATE: 20230601
